FAERS Safety Report 11966722 (Version 2)
Quarter: 2016Q3

REPORT INFORMATION
  Report Type: Report from Study
  Country: BR (occurrence: BR)
  Receive Date: 20160127
  Receipt Date: 20160707
  Transmission Date: 20161109
  Serious: Yes (Hospitalization, Other)
  Sender: FDA-Public Use
  Company Number: BR-ALEXION PHARMACEUTICALS INC-A201600363

PATIENT
  Age: 31 Year
  Sex: Female

DRUGS (3)
  1. PEN-VE-ORAL [Concomitant]
     Active Substance: PENICILLIN V POTASSIUM
     Indication: INFECTION PROPHYLAXIS
     Dosage: UNK
     Route: 048
  2. SOLIRIS [Suspect]
     Active Substance: ECULIZUMAB
     Dosage: 1200 MG, Q2W
     Route: 042
     Dates: start: 20140428
  3. SOLIRIS [Suspect]
     Active Substance: ECULIZUMAB
     Indication: HAEMOLYTIC URAEMIC SYNDROME
     Dosage: 900 MG, QW
     Route: 042
     Dates: start: 20140331, end: 20140421

REACTIONS (18)
  - Renal impairment [Unknown]
  - Urinary tract infection [Recovered/Resolved]
  - Irritability [Not Recovered/Not Resolved]
  - Insomnia [Not Recovered/Not Resolved]
  - Dysentery [Not Recovered/Not Resolved]
  - Mood swings [Not Recovered/Not Resolved]
  - Influenza [Recovered/Resolved]
  - Headache [Not Recovered/Not Resolved]
  - Social anxiety disorder [Not Recovered/Not Resolved]
  - Arthralgia [Recovered/Resolved]
  - Swelling [Not Recovered/Not Resolved]
  - Pain in extremity [Recovered/Resolved]
  - Muscle spasms [Not Recovered/Not Resolved]
  - Abdominal pain lower [Unknown]
  - Hypersomnia [Recovered/Resolved]
  - Hypertension [Not Recovered/Not Resolved]
  - Pregnancy [Unknown]
  - Blood cholesterol abnormal [Recovered/Resolved]

NARRATIVE: CASE EVENT DATE: 201411
